FAERS Safety Report 4410516-X (Version None)
Quarter: 2004Q3

REPORT INFORMATION
  Report Type: 
  Country: None (occurrence: None)
  Receive Date: 20040726
  Receipt Date: 20040719
  Transmission Date: 20050211
  Serious: Yes (Hospitalization)
  Sender: FDA-Public Use
  Company Number: K200401070

PATIENT
  Age: 34 Year
  Sex: Female

DRUGS (3)
  1. KEMADRIN [Suspect]
     Dosage: 5 MG, QD, ORAL
     Route: 048
  2. OLANZAPINE (OLANZAPINE) 20MG [Suspect]
     Dosage: 20 MG, QD,ORAL
     Route: 048
  3. METHOTRIMEPRAZINE (LEVOMEPROMAZINE) 12.5MG [Suspect]
     Dosage: 12.5 MG, QD,ORAL
     Route: 048

REACTIONS (5)
  - BRAIN OEDEMA [None]
  - DRUG INTERACTION [None]
  - HYPONATRAEMIA [None]
  - POLYDIPSIA [None]
  - WATER INTOXICATION [None]
